FAERS Safety Report 20049060 (Version 1)
Quarter: 2021Q4

REPORT INFORMATION
  Report Type: Spontaneous
  Country: PL (occurrence: PL)
  Receive Date: 20211109
  Receipt Date: 20211109
  Transmission Date: 20220303
  Serious: Yes (Other)
  Sender: FDA-Public Use
  Company Number: PL-BAUSCH-BL-2021-035131

PATIENT
  Age: 64 Year
  Sex: Male

DRUGS (14)
  1. ATORVASTATIN CALCIUM [Suspect]
     Active Substance: ATORVASTATIN CALCIUM
     Dosage: 20 MG
  2. ASPIRIN [Suspect]
     Active Substance: ASPIRIN
     Dosage: 100 MG
  3. EPLERENONE [Suspect]
     Active Substance: EPLERENONE
     Dosage: UNK
  4. SPIRONOLACTONE AND HYDROCHLOROTHIAZIDE [Suspect]
     Active Substance: HYDROCHLOROTHIAZIDE\SPIRONOLACTONE
     Dosage: UNK
  5. RAMIPRIL [Suspect]
     Active Substance: RAMIPRIL
     Dosage: 5 MG, 2X/DAY(FREQ:12 H)
  6. CARVEDILOL [Suspect]
     Active Substance: CARVEDILOL
     Dosage: DOSE TEXT: 25-0-12.5 MG
  7. CARVEDILOL [Suspect]
     Active Substance: CARVEDILOL
     Dosage: DOSE TEXT: 2X12.5
  8. TORSEMIDE [Suspect]
     Active Substance: TORSEMIDE
     Dosage: 20 MG, 1X/DAY(FREQ:24 H)
  9. METFORMIN HYDROCHLORIDE [Suspect]
     Active Substance: METFORMIN HYDROCHLORIDE
     Dosage: 850 MG, 2X/DAY(FREQ:12 H)
     Route: 065
  10. EZETIMIBE [Suspect]
     Active Substance: EZETIMIBE
     Dosage: 10 MG
  11. ALLOPURINOL [Suspect]
     Active Substance: ALLOPURINOL
     Dosage: 100 MG
  12. SACUBITRIL\VALSARTAN [Suspect]
     Active Substance: SACUBITRIL\VALSARTAN
     Indication: Cardiac failure
     Dosage: DOSE TEXT: 24/26
  13. SACUBITRIL\VALSARTAN [Suspect]
     Active Substance: SACUBITRIL\VALSARTAN
     Dosage: DOSE TEXT: 49/51
  14. DAPAGLIFLOZIN [Suspect]
     Active Substance: DAPAGLIFLOZIN
     Dosage: 10 MG
     Route: 048

REACTIONS (10)
  - Diabetes mellitus [Unknown]
  - Type V hyperlipidaemia [Unknown]
  - Fatigue [Unknown]
  - Oedema peripheral [Unknown]
  - Hypertension [Unknown]
  - Nonalcoholic fatty liver disease [Unknown]
  - Abdominal distension [Unknown]
  - Blood pressure decreased [Unknown]
  - Hyperuricaemia [Unknown]
  - Obesity [Unknown]
